FAERS Safety Report 8280130-7 (Version None)
Quarter: 2012Q2

REPORT INFORMATION
  Report Type: 
  Country: None (occurrence: None)
  Receive Date: 20120412
  Receipt Date: 20110822
  Transmission Date: 20120825
  Serious: No
  Sender: FDA-Public Use
  Company Number: US-ASTRAZENECA-2011SE50186

PATIENT
  Age: 87 Year
  Sex: Female
  Weight: 47.2 kg

DRUGS (5)
  1. ATENOLOL [Concomitant]
  2. AMLODIPINE [Concomitant]
     Indication: HYPERTENSION
  3. LISINOPRIL [Concomitant]
     Indication: HYPERTENSION
  4. NEXIUM [Suspect]
     Indication: GASTRIC ULCER
     Route: 048
     Dates: start: 20101201
  5. ASPIRIN [Concomitant]

REACTIONS (3)
  - OFF LABEL USE [None]
  - DIARRHOEA [None]
  - DRY MOUTH [None]
